FAERS Safety Report 8748641 (Version 2)
Quarter: 2012Q4

REPORT INFORMATION
  Report Type: Report from Study
  Country: DE (occurrence: DE)
  Receive Date: 20120827
  Receipt Date: 20121011
  Transmission Date: 20130627
  Serious: Yes (Hospitalization, Disabling, Other)
  Sender: FDA-Public Use
  Company Number: DE-ROCHE-1106736

PATIENT
  Sex: Female
  Weight: 84 kg

DRUGS (2)
  1. ROACTEMRA [Suspect]
     Indication: RHEUMATOID ARTHRITIS
     Route: 042
     Dates: start: 20100317, end: 20110228
  2. MTX [Suspect]
     Indication: RHEUMATOID ARTHRITIS
     Route: 058
     Dates: start: 20101013

REACTIONS (2)
  - Retinal detachment [Not Recovered/Not Resolved]
  - Visual impairment [Unknown]
